FAERS Safety Report 8810667 (Version 1)
Quarter: 2012Q4

REPORT INFORMATION
  Report Type: Spontaneous
  Country: US (occurrence: None)
  Receive Date: 20120924
  Receipt Date: 20120924
  Transmission Date: 20130627
  Serious: Yes (Other)
  Sender: FDA-Public Use
  Company Number: None

PATIENT
  Age: 22 Year
  Sex: Male
  Weight: 72.58 kg

DRUGS (2)
  1. ZOLPIDEM [Suspect]
     Indication: LASIK EYE SURGERY
     Route: 048
     Dates: start: 20110728, end: 20110731
  2. ZOLPIDEM [Suspect]
     Indication: POSTOPERATIVE CARE
     Route: 048
     Dates: start: 20110728, end: 20110731

REACTIONS (6)
  - Sexual abuse [None]
  - Imprisonment [None]
  - Suicide attempt [None]
  - Alcohol use [None]
  - Alcohol interaction [None]
  - Abnormal behaviour [None]
